FAERS Safety Report 5108119-7 (Version None)
Quarter: 2006Q3

REPORT INFORMATION
  Report Type: 
  Country: None (occurrence: None)
  Receive Date: 20060919
  Receipt Date: 20060918
  Transmission Date: 20061208
  Serious: Yes (Other)
  Sender: FDA-Public Use
  Company Number: US-GLAXOSMITHKLINE-A0620526A

PATIENT
  Sex: Male

DRUGS (7)
  1. AVODART [Suspect]
     Indication: PROSTATIC DISORDER
     Dosage: .5MG PER DAY
     Route: 048
     Dates: start: 20060317
  2. TAMBOCOR [Concomitant]
  3. LIPITOR [Concomitant]
  4. COZAAR [Concomitant]
  5. TETRACYCLINE [Concomitant]
  6. MINOCYCLINE HCL [Concomitant]
  7. MULTI-VITAMIN [Concomitant]

REACTIONS (3)
  - BREAST ENLARGEMENT [None]
  - DRUG INEFFECTIVE [None]
  - URINARY INCONTINENCE [None]
